FAERS Safety Report 7225797-7 (Version None)
Quarter: 2011Q1

REPORT INFORMATION
  Report Type: 
  Country: None (occurrence: None)
  Receive Date: 20110113
  Receipt Date: 20110112
  Transmission Date: 20110831
  Serious: Yes (Death)
  Sender: FDA-Public Use
  Company Number: SE-ALLERGAN-1100366US

PATIENT
  Age: 68 Year
  Sex: Male

DRUGS (3)
  1. BOTOXA? [Suspect]
     Indication: PARESIS
     Dosage: 285 UNITS, SINGLE
     Route: 030
     Dates: start: 20110111, end: 20110111
  2. BOTOXA? [Suspect]
     Dosage: UNK UNITS, SINGLE
     Route: 030
     Dates: start: 20100901, end: 20100901
  3. BOTOXA? [Suspect]
     Dosage: UNK
     Route: 030
     Dates: start: 20110111, end: 20110111

REACTIONS (1)
  - DEATH [None]
